FAERS Safety Report 6585243-3 (Version None)
Quarter: 2010Q1

REPORT INFORMATION
  Report Type: 
  Country: None (occurrence: None)
  Receive Date: 20100204
  Receipt Date: 20100125
  Transmission Date: 20100710
  Serious: Yes (Hospitalization)
  Sender: FDA-Public Use
  Company Number: 493382

PATIENT
  Age: 32 Year
  Sex: Female

DRUGS (4)
  1. METHOTREXATE [Suspect]
     Indication: BREAST CANCER
     Dosage: FOUR CYCLES,
  2. CYCLOPHOSPHAMIDE [Suspect]
     Indication: BREAST CANCER
     Dosage: FOUR CYCLES,
  3. (5-FLUOROURACIL /00098801/) [Suspect]
     Indication: BREAST CANCER
     Dosage: FOUR CYCLES
  4. (THERAPEUTIC RADIOPHARMACEUTICALS) [Suspect]
     Indication: BREAST CANCER

REACTIONS (1)
  - ACUTE MYELOID LEUKAEMIA [None]
